FAERS Safety Report 8643903 (Version 2)
Quarter: 2013Q1

REPORT INFORMATION
  Report Type: Spontaneous
  Country: FR (occurrence: FR)
  Receive Date: 20120629
  Receipt Date: 20130319
  Transmission Date: 20140127
  Serious: Yes (Hospitalization)
  Sender: FDA-Public Use
  Company Number: FR-BRISTOL-MYERS SQUIBB COMPANY-16699597

PATIENT
  Age: 47 Year
  Sex: Female

DRUGS (5)
  1. ABILIFY [Suspect]
     Indication: SCHIZOPHRENIA
     Route: 048
     Dates: start: 20120419, end: 20120504
  2. LEPONEX [Suspect]
     Indication: SCHIZOPHRENIA
     Dosage: 1DF=25 TO 75 MG
     Route: 048
     Dates: start: 20120505, end: 20120506
  3. XANAX [Concomitant]
     Dosage: XANAX 0.5 IS THE STRENGTH?1DF=1.5 UNIT NOS
  4. TERCIAN [Concomitant]
     Dosage: TERCIAN 25MG IS THE STRENGTH.?1DF= 1.5 UNIT NOS
  5. LEVOTHYROX [Concomitant]

REACTIONS (5)
  - Deep vein thrombosis [Recovered/Resolved]
  - Pulmonary embolism [Recovered/Resolved]
  - General physical condition abnormal [Recovered/Resolved]
  - Decreased appetite [Recovered/Resolved]
  - Dyskinesia [Recovered/Resolved]
